FAERS Safety Report 4371411-8 (Version None)
Quarter: 2004Q2

REPORT INFORMATION
  Report Type: 
  Country: None (occurrence: None)
  Receive Date: 20040607
  Receipt Date: 20040430
  Transmission Date: 20050107
  Serious: Yes (Death, Other)
  Sender: FDA-Public Use
  Company Number: PHFR2004GB01952

PATIENT
  Age: 49 Year
  Sex: Male

DRUGS (9)
  1. CLOZARIL [Suspect]
     Indication: SCHIZOPHRENIA
     Dosage: 275MG/DAY
     Route: 048
     Dates: start: 20030429
  2. CLOZARIL [Suspect]
     Dosage: 50MG/DAY
     Route: 048
     Dates: start: 20040416
  3. CLOZARIL [Suspect]
     Dosage: 250MG/DAY
     Route: 048
  4. INSULIN NORDISK MIXTARD (PORK) [Concomitant]
     Indication: DIABETES MELLITUS NON-INSULIN-DEPENDENT
     Dosage: 5MG/DAY
     Route: 058
  5. ASPIRIN [Concomitant]
     Dosage: 75MG/DAY
     Route: 048
  6. FLUOXETINE [Concomitant]
     Indication: SCHIZOPHRENIA
     Dosage: 20MG/DAY
     Route: 048
  7. SULPIRIDE [Concomitant]
     Dosage: 200MG/DAY
     Route: 048
     Dates: start: 20040420
  8. AMOXIL ^AYERST LAB^ [Concomitant]
     Indication: LOWER RESPIRATORY TRACT INFECTION
     Dosage: 250MG/DAY
     Route: 048
  9. LIPITOR [Concomitant]
     Indication: HYPERCHOLESTEROLAEMIA
     Dosage: 20MG/DAY
     Route: 048

REACTIONS (8)
  - CORONARY ARTERY DISEASE [None]
  - COUGH [None]
  - DECREASED IMMUNE RESPONSIVENESS [None]
  - DIABETES MELLITUS [None]
  - DYSPNOEA [None]
  - INFLUENZA LIKE ILLNESS [None]
  - LOBAR PNEUMONIA [None]
  - TREATMENT NONCOMPLIANCE [None]
